FAERS Safety Report 8772336 (Version 8)
Quarter: 2013Q3

REPORT INFORMATION
  Report Type: Spontaneous
  Country: US (occurrence: US)
  Receive Date: 20120906
  Receipt Date: 20130920
  Transmission Date: 20140515
  Serious: Yes (Hospitalization, Other)
  Sender: FDA-Public Use
  Company Number: US-009507513-1208USA010973

PATIENT
  Sex: Female
  Weight: 61.22 kg

DRUGS (3)
  1. NUVARING [Suspect]
     Indication: CONTRACEPTION
     Dosage: UNK
     Dates: start: 20070725, end: 200810
  2. NUVARING [Suspect]
     Dosage: UNK
     Dates: start: 20100729, end: 201009
  3. COUGH, COLD, AND FLU THERAPIES (UNSPECIFIED) [Concomitant]

REACTIONS (14)
  - Cardiac aneurysm [Unknown]
  - Ischaemic cerebral infarction [Recovered/Resolved]
  - Cerebral artery occlusion [Unknown]
  - Atrial septal defect [Unknown]
  - Pneumothorax [Unknown]
  - Methylenetetrahydrofolate reductase deficiency [Unknown]
  - Chest pain [Unknown]
  - Maternal exposure before pregnancy [Unknown]
  - Local swelling [Unknown]
  - Thrombectomy [Unknown]
  - Hypersensitivity [Unknown]
  - Chest pain [Unknown]
  - Palpitations [Unknown]
  - High risk pregnancy [Unknown]
